FAERS Safety Report 22355850 (Version 4)
Quarter: 2023Q4

REPORT INFORMATION
  Report Type: Spontaneous
  Country: US (occurrence: US)
  Receive Date: 20230523
  Receipt Date: 20231120
  Transmission Date: 20240109
  Serious: No
  Sender: FDA-Public Use
  Company Number: US-PFIZER INC-PV202300090229

PATIENT
  Age: 59 Year
  Sex: Female

DRUGS (1)
  1. XELJANZ [Suspect]
     Active Substance: TOFACITINIB CITRATE
     Dosage: UNK, 2X/DAY

REACTIONS (6)
  - Headache [Unknown]
  - Blood cholesterol increased [Unknown]
  - Fatigue [Unknown]
  - Raynaud^s phenomenon [Recovered/Resolved]
  - Condition aggravated [Unknown]
  - Brain fog [Unknown]
